FAERS Safety Report 5126072-7 (Version None)
Quarter: 2006Q4

REPORT INFORMATION
  Report Type: 
  Country: None (occurrence: None)
  Receive Date: 20061010
  Receipt Date: 20061010
  Transmission Date: 20070319
  Serious: Yes (Hospitalization)
  Sender: FDA-Public Use
  Company Number: None

PATIENT
  Age: 54 Year
  Sex: Female

DRUGS (7)
  1. IMATINIB MESYLATE [Suspect]
     Indication: GLIOBLASTOMA MULTIFORME
     Dosage: 400 MG QD
     Dates: start: 20060314, end: 20060924
  2. PTK [Suspect]
     Indication: GLIOBLASTOMA MULTIFORME
     Dosage: 750MGBID
     Dates: start: 20060307, end: 20060924
  3. HYDROXYUREA [Suspect]
     Indication: GLIOBLASTOMA MULTIFORME
     Dosage: 500 MG QD
     Dates: start: 20060314, end: 20060924
  4. KEPPRA [Concomitant]
  5. LIPITOR [Concomitant]
  6. METAMUCIL [Concomitant]
  7. ZOFRAN [Concomitant]

REACTIONS (8)
  - BRAIN OEDEMA [None]
  - BRAIN SCAN ABNORMAL [None]
  - CONFUSIONAL STATE [None]
  - FATIGUE [None]
  - HEADACHE [None]
  - HEMIPARESIS [None]
  - MALIGNANT NEOPLASM PROGRESSION [None]
  - VISION BLURRED [None]
